FAERS Safety Report 10607431 (Version 1)
Quarter: 2014Q4

REPORT INFORMATION
  Report Type: Spontaneous
  Country: US (occurrence: US)
  Receive Date: 20141125
  Receipt Date: 20141125
  Transmission Date: 20150529
  Serious: No
  Sender: FDA-Public Use
  Company Number: US-PFIZER INC-2014318532

PATIENT
  Sex: Female

DRUGS (7)
  1. ALLEGRA [Suspect]
     Active Substance: FEXOFENADINE HYDROCHLORIDE
     Indication: DERMATITIS ATOPIC
     Dosage: 180 MG, PRN
     Route: 048
     Dates: start: 201202, end: 201203
  2. PREDNISONE. [Suspect]
     Active Substance: PREDNISONE
     Dosage: 20 MG, FOR 2 DAYS
     Route: 048
  3. DECADRON [Suspect]
     Active Substance: DEXAMETHASONE
     Indication: DERMATITIS ATOPIC
     Dosage: 10 MG, UNK
     Route: 030
     Dates: start: 20140726, end: 20140726
  4. PREDNISONE. [Suspect]
     Active Substance: PREDNISONE
     Dosage: 30 MG, FOR 3 DAYS
     Route: 048
  5. PREDNISONE. [Suspect]
     Active Substance: PREDNISONE
     Dosage: 40 MG, FOR 3 DAYS
     Route: 048
  6. PREDNISONE. [Suspect]
     Active Substance: PREDNISONE
     Dosage: 10 MG, FOR 2 DAYS
     Route: 048
  7. HYDROXYZINE PAMOATE. [Suspect]
     Active Substance: HYDROXYZINE PAMOATE
     Indication: DERMATITIS ATOPIC
     Dosage: 20 MG, AS NEEDED
     Route: 048
     Dates: start: 201202, end: 201205

REACTIONS (1)
  - Drug effect incomplete [Unknown]
